FAERS Safety Report 11838242 (Version 2)
Quarter: 2016Q4

REPORT INFORMATION
  Report Type: Spontaneous
  Country: US (occurrence: US)
  Receive Date: 20151215
  Receipt Date: 20161215
  Transmission Date: 20170206
  Serious: Yes (Life-Threatening, Other)
  Sender: FDA-Public Use
  Company Number: US-NOVOPROD-390470

PATIENT
  Age: 62 Year
  Sex: Female
  Weight: 114.29 kg

DRUGS (6)
  1. NOVOLIN 70/30 [Suspect]
     Active Substance: INSULIN HUMAN
     Dosage: 30 UNITS IN AM AND 15 UNITS IN PM
     Route: 058
  2. NOVOLIN 70/30 [Suspect]
     Active Substance: INSULIN HUMAN
     Dosage: 30 U, QD
     Route: 058
     Dates: start: 20131001, end: 20131009
  3. NOVOLIN 70/30 [Suspect]
     Active Substance: INSULIN HUMAN
     Dosage: 20 UNITS IN AM AND 10 UNITS IN PM
     Route: 058
     Dates: start: 20130929
  4. NOVOLIN 70/30 [Suspect]
     Active Substance: INSULIN HUMAN
     Indication: TYPE 2 DIABETES MELLITUS
     Dosage: 35 UNITS IN AM AND 20 UNITS IN PM
     Route: 058
     Dates: start: 201107
  5. NOVOLIN 70/30 [Suspect]
     Active Substance: INSULIN HUMAN
     Dosage: 20 U, SINGLE
     Route: 058
     Dates: start: 20130928, end: 20130928
  6. NOVOLIN 70/30 [Suspect]
     Active Substance: INSULIN HUMAN
     Dosage: 55 U, QD
     Route: 058
     Dates: start: 2013

REACTIONS (3)
  - Hypoglycaemic unconsciousness [Recovered/Resolved]
  - Wrong drug administered [Recovered/Resolved]
  - Blood glucose decreased [Recovered/Resolved]

NARRATIVE: CASE EVENT DATE: 20130924
